FAERS Safety Report 8089044-9 (Version None)
Quarter: 2012Q1

REPORT INFORMATION
  Report Type: 
  Country: None (occurrence: None)
  Receive Date: 20120128
  Receipt Date: 20110712
  Transmission Date: 20120608
  Serious: No
  Sender: FDA-Public Use
  Company Number: PR-ABBOTT-11P-131-0838272-00

PATIENT
  Sex: Female
  Weight: 55.388 kg

DRUGS (3)
  1. FLAGYL [Concomitant]
     Indication: ABSCESS
     Route: 048
     Dates: start: 20110601, end: 20110701
  2. HUMIRA [Suspect]
     Indication: CROHN'S DISEASE
     Route: 058
     Dates: start: 20110701, end: 20110712
  3. AUGMENTIN '125' [Concomitant]
     Indication: ABSCESS
     Route: 048
     Dates: start: 20110601, end: 20110701

REACTIONS (3)
  - PRURITUS GENERALISED [None]
  - ERYTHEMA [None]
  - SWELLING [None]
